FAERS Safety Report 9034177 (Version 2)
Quarter: 2013Q1

REPORT INFORMATION
  Report Type: Spontaneous
  Country: US (occurrence: None)
  Receive Date: 20130114
  Receipt Date: 20130228
  Transmission Date: 20140127
  Serious: Yes (Disabling, Other)
  Sender: FDA-Public Use
  Company Number: ACO_33622_2012

PATIENT
  Sex: Female
  Weight: 47.6 kg

DRUGS (7)
  1. AMPYRA (DALFAMPRIDINE) TABLET, 10MG [Suspect]
     Indication: GAIT DISTURBANCE
     Route: 048
  2. PROPRANOLOL (PROPRANOLOL HYDROCHLORIDE) [Concomitant]
  3. BUPROPION (BUPROPION HYDROCHLORIDE) [Concomitant]
  4. GABAPENTIN (GABAPENTIN) [Concomitant]
  5. MODAFINIL (MODAFINIL) [Concomitant]
  6. AMANTADINE (AMANTADINE HYDROCHLORIDE) [Concomitant]
  7. PRIMIDONE (PRIMIDONE) [Concomitant]

REACTIONS (2)
  - Abasia [None]
  - Drug ineffective [None]
